FAERS Safety Report 8068503-9 (Version None)
Quarter: 2012Q1

REPORT INFORMATION
  Report Type: 
  Country: None (occurrence: None)
  Receive Date: 20120124
  Receipt Date: 20111102
  Transmission Date: 20120608
  Serious: No
  Sender: FDA-Public Use
  Company Number: US-AMGEN-USASP2011056890

PATIENT
  Sex: Female

DRUGS (4)
  1. TREXALL [Concomitant]
  2. PROLIA [Suspect]
     Indication: OSTEOPOROSIS POSTMENOPAUSAL
     Dosage: 60 MG, Q6MO
     Dates: start: 20110901
  3. EQUATE                             /00002701/ [Concomitant]
  4. TRAMADOL HCL [Concomitant]

REACTIONS (1)
  - MYALGIA [None]
